FAERS Safety Report 6608263-9 (Version None)
Quarter: 2010Q1

REPORT INFORMATION
  Report Type: 
  Country: None (occurrence: None)
  Receive Date: 20100301
  Receipt Date: 20100225
  Transmission Date: 20100710
  Serious: Yes (Other)
  Sender: FDA-Public Use
  Company Number: CH-ROCHE-687484

PATIENT
  Age: 40 Year
  Sex: Female

DRUGS (4)
  1. BEVACIZUMAB [Suspect]
     Indication: BREAST CANCER
     Dosage: FREQUENCY: 3 WEEKS
     Route: 042
     Dates: start: 20090911, end: 20091215
  2. BEVACIZUMAB [Suspect]
     Dosage: FREQUENCY: 3 WEEKS
     Route: 042
     Dates: start: 20091216, end: 20100106
  3. CAPECITABINE [Suspect]
     Indication: BREAST CANCER
     Route: 048
  4. TAXOL [Concomitant]
     Indication: BREAST CANCER
     Dates: start: 20090911, end: 20100106

REACTIONS (4)
  - ABDOMINAL PAIN [None]
  - CONSTIPATION [None]
  - MALIGNANT NEOPLASM PROGRESSION [None]
  - RENAL DISORDER [None]
